FAERS Safety Report 5072375-4 (Version None)
Quarter: 2006Q3

REPORT INFORMATION
  Report Type: 
  Country: None (occurrence: None)
  Receive Date: 20060801
  Receipt Date: 20060720
  Transmission Date: 20061208
  Serious: Yes (Hospitalization, Other)
  Sender: FDA-Public Use
  Company Number: 2005133673

PATIENT
  Age: 69 Year
  Sex: Male
  Weight: 81.6475 kg

DRUGS (1)
  1. BEXTRA [Suspect]
     Indication: MUSCULOSKELETAL PAIN
     Dosage: 10 MG

REACTIONS (6)
  - BLINDNESS UNILATERAL [None]
  - CEREBROVASCULAR ACCIDENT [None]
  - MYOCARDIAL INFARCTION [None]
  - THROMBOSIS [None]
  - TRANSIENT ISCHAEMIC ATTACK [None]
  - VASCULAR INJURY [None]
